FAERS Safety Report 8251060-1 (Version None)
Quarter: 2012Q2

REPORT INFORMATION
  Report Type: 
  Country: None (occurrence: None)
  Receive Date: 20120402
  Receipt Date: 20120319
  Transmission Date: 20120825
  Serious: Yes (Other)
  Sender: FDA-Public Use
  Company Number: CH-ALLERGAN-1203579US

PATIENT
  Age: 78 Year
  Sex: Male

DRUGS (7)
  1. OZURDEX [Suspect]
     Dosage: 0.7 MG, SINGLE
     Route: 031
     Dates: start: 20111213, end: 20111213
  2. ASPIRIN [Concomitant]
  3. OZURDEX [Suspect]
     Indication: RETINAL VEIN OCCLUSION
     Dosage: 0.7 MG, SINGLE
     Route: 031
     Dates: start: 20110712, end: 20110712
  4. CORDARONE [Concomitant]
  5. PRAXILENE [Concomitant]
  6. DIAMICRON [Concomitant]
  7. AMILORIDE HCL AND HYDROCHLOROTHIAZIDE [Concomitant]

REACTIONS (2)
  - VISUAL ACUITY REDUCED [None]
  - DEVICE COLOUR ISSUE [None]
